FAERS Safety Report 23608471 (Version 1)
Quarter: 2024Q1

REPORT INFORMATION
  Report Type: Spontaneous
  Country: KR (occurrence: KR)
  Receive Date: 20240307
  Receipt Date: 20240307
  Transmission Date: 20240410
  Serious: Yes (Hospitalization)
  Sender: FDA-Public Use
  Company Number: KR-MACLEODS PHARMACEUTICALS US LTD-MAC2024046238

PATIENT

DRUGS (4)
  1. IBANDRONATE SODIUM [Suspect]
     Active Substance: IBANDRONATE SODIUM
     Indication: Osteoporosis postmenopausal
     Dosage: UNK (ONCE MONTHLY FOR THREE YEARS)
     Route: 048
  2. IBANDRONATE SODIUM [Suspect]
     Active Substance: IBANDRONATE SODIUM
     Dosage: 3 MILLIGRAM (QUARTERLY)
     Route: 042
  3. CALCIUM [Concomitant]
     Active Substance: CALCIUM
     Indication: Osteoporosis postmenopausal
     Dosage: UNK
     Route: 048
  4. VITAMIN D [Concomitant]
     Active Substance: VITAMIN D NOS
     Indication: Osteoporosis postmenopausal
     Dosage: UNK
     Route: 048

REACTIONS (3)
  - Focal segmental glomerulosclerosis [Recovering/Resolving]
  - Nephropathy toxic [Recovering/Resolving]
  - Azotaemia [Recovering/Resolving]
